FAERS Safety Report 9902261 (Version 2)
Quarter: 2014Q1

REPORT INFORMATION
  Report Type: Spontaneous
  Country: US (occurrence: US)
  Receive Date: 20140217
  Receipt Date: 20140217
  Transmission Date: 20141002
  Serious: No
  Sender: FDA-Public Use
  Company Number: US-GILEAD-2011-0044292

PATIENT
  Age: 74 Year
  Sex: Female
  Weight: 53.3 kg

DRUGS (4)
  1. LETAIRIS [Suspect]
     Indication: PULMONARY ARTERIAL HYPERTENSION
     Dosage: 10 MG, UNK
     Route: 048
  2. TYVASO [Suspect]
     Indication: PULMONARY ARTERIAL HYPERTENSION
  3. REVATIO [Suspect]
     Indication: PULMONARY ARTERIAL HYPERTENSION
  4. COUMADIN                           /00014802/ [Concomitant]

REACTIONS (5)
  - Diarrhoea [Unknown]
  - Hypertension [Unknown]
  - Nausea [Unknown]
  - Dyspnoea [Unknown]
  - Oedema [Unknown]
